FAERS Safety Report 8824525 (Version 3)
Quarter: 2012Q4

REPORT INFORMATION
  Report Type: Report from Study
  Country: JP (occurrence: JP)
  Receive Date: 20121004
  Receipt Date: 20121101
  Transmission Date: 20130627
  Serious: Yes (Hospitalization)
  Sender: FDA-Public Use
  Company Number: JP-SANOFI-AVENTIS-2012SA071496

PATIENT
  Age: 63 Year
  Sex: Male
  Weight: 58 kg

DRUGS (29)
  1. OXALIPLATIN [Suspect]
     Indication: PANCREATIC CARCINOMA
     Route: 041
     Dates: start: 20120703, end: 20120724
  2. OXALIPLATIN [Suspect]
     Indication: PANCREATIC CARCINOMA
     Route: 041
     Dates: start: 20120821, end: 20120821
  3. OXALIPLATIN [Suspect]
     Indication: PANCREATIC CARCINOMA
     Dosage: dose- 84 mg once in 2 weeks, 301mg, once in  2 weeks
     Route: 041
     Dates: start: 20120911, end: 20120911
  4. IRINOTECAN HYDROCHLORIDE [Suspect]
     Indication: PANCREATIC CARCINOMA
     Route: 041
     Dates: start: 20120703, end: 20120703
  5. IRINOTECAN HYDROCHLORIDE [Suspect]
     Indication: PANCREATIC CARCINOMA
     Route: 041
     Dates: start: 20120724, end: 20120821
  6. IRINOTECAN HYDROCHLORIDE [Suspect]
     Indication: PANCREATIC CARCINOMA
     Route: 041
     Dates: start: 20120911, end: 20120911
  7. CALCIUM LEVOFOLINATE [Suspect]
     Indication: PANCREATIC CARCINOMA
     Route: 041
     Dates: start: 20120703, end: 20120911
  8. FLUOROURACIL [Suspect]
     Indication: PANCREATIC CARCINOMA
     Route: 040
     Dates: start: 20120703, end: 20120703
  9. FLUOROURACIL [Suspect]
     Indication: PANCREATIC CARCINOMA
     Route: 041
     Dates: start: 20120703, end: 20120912
  10. DEXAMETHASONE SODIUM PHOSPHATE [Suspect]
     Indication: PROPHYLAXIS OF NAUSEA AND VOMITING
     Route: 041
     Dates: start: 20120703
  11. DEXAMETHASONE [Suspect]
     Indication: PROPHYLAXIS OF NAUSEA AND VOMITING
     Route: 048
     Dates: start: 20120724
  12. ALOXI [Concomitant]
     Dates: start: 20120703
  13. ATROPINE SULFATE [Concomitant]
     Dates: start: 20120703
  14. FENTANYL CITRATE [Concomitant]
     Dosage: tape (including poultice)
     Dates: start: 20120801
  15. OXINORM [Concomitant]
     Dosage: form: Powder except [DPO]
  16. LOXONIN [Concomitant]
  17. MAGNESIUM OXIDE [Concomitant]
  18. FOIPAN [Concomitant]
  19. ESOMEPRAZOLE MAGNESIUM [Concomitant]
  20. SENNOSIDE A+B [Concomitant]
  21. NOVAMIN [Concomitant]
     Dates: start: 20120709
  22. DOMPERIDONE [Concomitant]
     Dates: start: 20120709
  23. EMEND [Concomitant]
     Dates: start: 20120724
  24. MYSLEE [Concomitant]
  25. CONSTAN [Concomitant]
     Dates: start: 20120827
  26. AMOBAN [Concomitant]
     Dates: start: 20120706
  27. TETRAMIDE [Concomitant]
     Dates: start: 20120918
  28. SEROQUEL [Concomitant]
  29. MORPHINE HYDROCHLORIDE [Concomitant]
     Dates: start: 20120919

REACTIONS (1)
  - Depression [Recovering/Resolving]
